FAERS Safety Report 15221867 (Version 2)
Quarter: 2019Q2

REPORT INFORMATION
  Report Type: Spontaneous
  Country: US (occurrence: US)
  Receive Date: 20180731
  Receipt Date: 20190517
  Transmission Date: 20190711
  Serious: Yes (Other)
  Sender: FDA-Public Use
  Company Number: US-MYLANLABS-2018M1057169

PATIENT
  Age: 37 Year
  Sex: Female

DRUGS (1)
  1. PREDNISONE. [Suspect]
     Active Substance: PREDNISONE
     Indication: SYSTEMIC LUPUS ERYTHEMATOSUS
     Dosage: 15 MILLIGRAM
     Route: 065

REACTIONS (3)
  - Hyperglycaemia [Recovered/Resolved]
  - Symptom masked [Recovered/Resolved]
  - Hyperadrenocorticism [Recovered/Resolved]
